FAERS Safety Report 10679251 (Version 1)
Quarter: 2014Q4

REPORT INFORMATION
  Report Type: Spontaneous
  Country: US (occurrence: None)
  Receive Date: 20141224
  Receipt Date: 20141224
  Transmission Date: 20150529
  Serious: Yes (Life-Threatening, Hospitalization)
  Sender: FDA-Public Use
  Company Number: None

PATIENT
  Age: 61 Year
  Sex: Female
  Weight: 114 kg

DRUGS (5)
  1. LYRICA [Suspect]
     Active Substance: PREGABALIN
     Indication: NEUROPATHY PERIPHERAL
     Dosage: 1, QD, ORAL
     Route: 048
     Dates: start: 20141219, end: 20141221
  2. BLOOD PRESSURE MEDS [Concomitant]
  3. DIABETES MEDS [Concomitant]
  4. KIDNEY MEDS [Concomitant]
  5. ULTRACET [Concomitant]
     Active Substance: ACETAMINOPHEN\TRAMADOL HYDROCHLORIDE

REACTIONS (4)
  - Depressed level of consciousness [None]
  - Dyskinesia [None]
  - Confusional state [None]
  - Hypopnoea [None]

NARRATIVE: CASE EVENT DATE: 20141222
